FAERS Safety Report 4385150-0 (Version None)
Quarter: 2004Q2

REPORT INFORMATION
  Report Type: 
  Country: None (occurrence: None)
  Receive Date: 20040624
  Receipt Date: 20040624
  Transmission Date: 20050107
  Serious: No
  Sender: FDA-Public Use
  Company Number: None

PATIENT
  Sex: Female

DRUGS (1)
  1. ACCUTANE [Suspect]
     Indication: KERATOSIS FOLLICULAR
     Dosage: 20 MG ONE BID PO
     Route: 048

REACTIONS (1)
  - KERATOSIS FOLLICULAR [None]
